FAERS Safety Report 7438964-4 (Version None)
Quarter: 2011Q2

REPORT INFORMATION
  Report Type: 
  Country: None (occurrence: None)
  Receive Date: 20110426
  Receipt Date: 20110412
  Transmission Date: 20111010
  Serious: Yes (Hospitalization)
  Sender: FDA-Public Use
  Company Number: US-MYLANLABS-2011S1007874

PATIENT
  Age: 16 Year
  Sex: Male

DRUGS (4)
  1. LORATADINE [Concomitant]
     Indication: SEASONAL ALLERGY
     Route: 065
  2. LANSOPRAZOLE [Concomitant]
     Indication: GASTROOESOPHAGEAL REFLUX DISEASE
     Route: 065
  3. FLUOXETINE [Suspect]
     Indication: DEPRESSION
     Route: 065
  4. DEXTROMETHORPHAN [Interacting]
     Route: 065

REACTIONS (2)
  - SEROTONIN SYNDROME [None]
  - DRUG INTERACTION [None]
